FAERS Safety Report 16730170 (Version 1)
Quarter: 2019Q3

REPORT INFORMATION
  Report Type: Spontaneous
  Country: US (occurrence: US)
  Receive Date: 20190705
  Receipt Date: 20190705
  Transmission Date: 20191005
  Serious: No
  Sender: FDA-Public Use
  Company Number: None

PATIENT
  Age: 60 Year
  Sex: Female
  Weight: 133.81 kg

DRUGS (2)
  1. ATORVASTATIN 80MG [Suspect]
     Active Substance: ATORVASTATIN
     Indication: HYPERLIPIDAEMIA
     Route: 048
     Dates: start: 2015
  2. ATORVASTATIN 40 MG [Suspect]
     Active Substance: ATORVASTATIN

REACTIONS (1)
  - Urticaria [None]
